FAERS Safety Report 4982950-0 (Version None)
Quarter: 2006Q2

REPORT INFORMATION
  Report Type: 
  Country: None (occurrence: None)
  Receive Date: 20060420
  Receipt Date: 20060404
  Transmission Date: 20061013
  Serious: Yes (Hospitalization)
  Sender: FDA-Public Use
  Company Number: 200612313BWH

PATIENT
  Sex: Female

DRUGS (1)
  1. SORAFENIB [Suspect]
     Indication: SMALL INTESTINE CARCINOMA
     Dosage: 400 MG, BID, ORAL
     Route: 048

REACTIONS (2)
  - DRUG DOSE OMISSION [None]
  - THROMBOSIS [None]
